FAERS Safety Report 19452911 (Version 1)
Quarter: 2021Q2

REPORT INFORMATION
  Report Type: Spontaneous
  Country: LT (occurrence: LT)
  Receive Date: 20210623
  Receipt Date: 20210623
  Transmission Date: 20210717
  Serious: Yes (Other)
  Sender: FDA-Public Use
  Company Number: LT-ACCORD-228940

PATIENT
  Age: 76 Year
  Sex: Male
  Weight: 80 kg

DRUGS (1)
  1. ATROPINE. [Suspect]
     Active Substance: ATROPINE
     Indication: HEART RATE DECREASED
     Dosage: 2.5 MG PER DAY INJECTED INTRAVENOUSLY AND INTRAMUSCULARLY (FURTHER DETAILS?NOT SPECIFIED)
     Dates: start: 20210420, end: 20210421

REACTIONS (2)
  - Disorientation [Recovered/Resolved]
  - Loss of consciousness [Recovered/Resolved]

NARRATIVE: CASE EVENT DATE: 20210421
